FAERS Safety Report 4525714-4 (Version None)
Quarter: 2004Q4

REPORT INFORMATION
  Report Type: 
  Country: None (occurrence: None)
  Receive Date: 20041116
  Receipt Date: 20040817
  Transmission Date: 20050328
  Serious: No
  Sender: FDA-Public Use
  Company Number: S04-USA-05952-01

PATIENT
  Age: 80 Year
  Sex: Female

DRUGS (10)
  1. NAMENDA [Suspect]
     Indication: VASCULAR DEMENTIA
     Dosage: 5 MG QD PO
     Route: 048
     Dates: start: 20040729, end: 20040804
  2. NAMENDA [Suspect]
     Indication: VASCULAR DEMENTIA
     Dosage: 5 MG BID PO
     Route: 048
     Dates: start: 20040805, end: 20040811
  3. NAMENDA [Suspect]
     Indication: VASCULAR DEMENTIA
     Dosage: 15 MG QD PO
     Route: 048
     Dates: start: 20040812
  4. DEPAKOTE [Suspect]
     Dates: start: 20040729, end: 20040804
  5. SYNTHROID [Concomitant]
  6. VITAMIN C [Concomitant]
  7. ECHINACEA (ECHINACEA EXTRACT) [Concomitant]
  8. LACTULOSE [Concomitant]
  9. ASPIRIN [Concomitant]
  10. EX-LAX [Concomitant]

REACTIONS (5)
  - CHROMATOPSIA [None]
  - CONFUSIONAL STATE [None]
  - HYPERSOMNIA [None]
  - RESTLESSNESS [None]
  - THINKING ABNORMAL [None]
